FAERS Safety Report 7067990-2 (Version None)
Quarter: 2010Q4

REPORT INFORMATION
  Report Type: 
  Country: None (occurrence: None)
  Receive Date: 20101027
  Receipt Date: 20101027
  Transmission Date: 20110411
  Serious: Yes (Life-Threatening, Hospitalization, Other)
  Sender: FDA-Public Use
  Company Number: None

PATIENT
  Age: 39 Year
  Sex: Female
  Weight: 88.5 kg

DRUGS (2)
  1. GAMMA GLOBULIN I.V. -HUMAN- UNKNOWN UNKNOWN [Suspect]
     Indication: PEMPHIGUS
     Dosage: 30 GRAMS DAILY IV
     Route: 042
     Dates: start: 20100918, end: 20100918
  2. GAMUNEX [Suspect]
     Indication: PEMPHIGUS
     Dosage: 35.5 GRAMS DAILY IV
     Route: 042
     Dates: start: 20100921, end: 20100921

REACTIONS (1)
  - SUPERIOR SAGITTAL SINUS THROMBOSIS [None]
